FAERS Safety Report 24993762 (Version 1)
Quarter: 2025Q1

REPORT INFORMATION
  Report Type: Spontaneous
  Country: CA (occurrence: CA)
  Receive Date: 20250221
  Receipt Date: 20250221
  Transmission Date: 20250408
  Serious: Yes (Life-Threatening, Other)
  Sender: Haleon PLC
  Company Number: CA-HALEON-2229341

PATIENT
  Age: 57 Year
  Sex: Male
  Weight: 76 kg

DRUGS (5)
  1. ADVIL [Suspect]
     Active Substance: IBUPROFEN
     Indication: Abdominal pain upper
     Route: 048
  2. AMITRIPTYLINE [Concomitant]
     Active Substance: AMITRIPTYLINE
     Indication: Product used for unknown indication
  3. DICYCLOMINE HYDROCHLORIDE USP [Concomitant]
     Indication: Product used for unknown indication
  4. PAXIL [Suspect]
     Active Substance: PAROXETINE HYDROCHLORIDE
     Indication: Product used for unknown indication
  5. QUETIAPINE [Concomitant]
     Active Substance: QUETIAPINE
     Indication: Product used for unknown indication

REACTIONS (6)
  - Abdominal abscess [Recovering/Resolving]
  - Asthenia [Recovering/Resolving]
  - Duodenal perforation [Recovering/Resolving]
  - Duodenal ulcer [Recovering/Resolving]
  - Peritonitis [Recovering/Resolving]
  - Upper gastrointestinal haemorrhage [Recovering/Resolving]
